FAERS Safety Report 4391984-9 (Version None)
Quarter: 2004Q3

REPORT INFORMATION
  Report Type: 
  Country: None (occurrence: None)
  Receive Date: 20040701
  Receipt Date: 20040616
  Transmission Date: 20050211
  Serious: Yes (Life-Threatening)
  Sender: FDA-Public Use
  Company Number: B0335917A

PATIENT
  Age: 57 Year
  Sex: Male
  Weight: 71.8498 kg

DRUGS (5)
  1. LITHIUM CARBONATE (GENERIC) (LITHIUM CARBONATE) [Suspect]
     Indication: DEPRESSION
     Dosage: 300 MG/THREE TIMES PER DAY/ORAL
     Route: 048
  2. BENZODIAZEPINES [Concomitant]
  3. ATENOLOL [Concomitant]
  4. CARVEDILOL [Concomitant]
  5. AMLODIPINE [Concomitant]

REACTIONS (2)
  - HYPOTENSION [None]
  - SELF-MEDICATION [None]
